FAERS Safety Report 20726096 (Version 1)
Quarter: 2022Q2

REPORT INFORMATION
  Report Type: Spontaneous
  Country: US (occurrence: None)
  Receive Date: 20220419
  Receipt Date: 20220419
  Transmission Date: 20220721
  Serious: Yes (Other)
  Sender: FDA-Public Use
  Company Number: 2022A150758

PATIENT
  Sex: Female

DRUGS (11)
  1. BRILINTA [Suspect]
     Active Substance: TICAGRELOR
     Route: 048
  2. IBRANCE [Suspect]
     Active Substance: PALBOCICLIB
     Route: 048
     Dates: start: 20211018
  3. LISINOPRIL [Concomitant]
     Active Substance: LISINOPRIL
  4. NITROGLYCERIN [Concomitant]
     Active Substance: NITROGLYCERIN
  5. ATORVASTATIN CALCIUM [Concomitant]
     Active Substance: ATORVASTATIN CALCIUM
  6. ASPIRIN [Concomitant]
     Active Substance: ASPIRIN
  7. LEVOTHYROXINE [Concomitant]
     Active Substance: LEVOTHYROXINE
  8. LETROZOLE [Concomitant]
     Active Substance: LETROZOLE
  9. VITAMIN D2 [Concomitant]
     Active Substance: ERGOCALCIFEROL
  10. CARVEDILOL [Concomitant]
     Active Substance: CARVEDILOL
  11. CLOPIDOGREL [Concomitant]
     Active Substance: CLOPIDOGREL BISULFATE

REACTIONS (4)
  - Thrombosis [Unknown]
  - Night sweats [Unknown]
  - Chills [Unknown]
  - Dyspnoea [Unknown]
